FAERS Safety Report 6635982-0 (Version None)
Quarter: 2010Q1

REPORT INFORMATION
  Report Type: 
  Country: None (occurrence: None)
  Receive Date: 20100310
  Receipt Date: 20100303
  Transmission Date: 20100710
  Serious: Yes (Other)
  Sender: FDA-Public Use
  Company Number: 2010EU000494

PATIENT
  Age: 69 Year
  Sex: Female
  Weight: 48.5 kg

DRUGS (7)
  1. VESICARE [Suspect]
     Indication: HYPERTONIC BLADDER
     Dosage: 5 MG, ORAL
     Route: 048
  2. METFORMIN HCL [Concomitant]
  3. ROSIGLITAZONE [Concomitant]
  4. SIMVASTATIN [Concomitant]
  5. GLICLAZIDE (GLICLAZIDE) [Concomitant]
  6. OMEPRAZOLE [Concomitant]
  7. CALCIUM (CALCIUM) [Concomitant]

REACTIONS (1)
  - VISUAL IMPAIRMENT [None]
